FAERS Safety Report 19712455 (Version 1)
Quarter: 2021Q3

REPORT INFORMATION
  Report Type: Spontaneous
  Country: IN (occurrence: IN)
  Receive Date: 20210817
  Receipt Date: 20210817
  Transmission Date: 20211014
  Serious: Yes (Death)
  Sender: FDA-Public Use
  Company Number: IN-GE HEALTHCARE LIFE SCIENCES-2021CSU004000

PATIENT

DRUGS (2)
  1. OMNIPAQUE [Suspect]
     Active Substance: IOHEXOL
     Indication: MYOCARDIAL INFARCTION
  2. OMNIPAQUE [Suspect]
     Active Substance: IOHEXOL
     Indication: ANGIOPLASTY
     Dosage: 120 ML, SINGLE
     Route: 013
     Dates: start: 20210807, end: 20210807

REACTIONS (2)
  - Pyrexia [Fatal]
  - Chills [Fatal]

NARRATIVE: CASE EVENT DATE: 20210807
